FAERS Safety Report 6772714-X (Version None)
Quarter: 2010Q2

REPORT INFORMATION
  Report Type: 
  Country: None (occurrence: None)
  Receive Date: 20100616
  Receipt Date: 20091029
  Transmission Date: 20101027
  Serious: No
  Sender: FDA-Public Use
  Company Number: US-ASTRAZENECA-2009SE23373

PATIENT
  Age: 72 Year
  Sex: Female
  Weight: 78.9 kg

DRUGS (6)
  1. PULMICORT FLEXHALER [Suspect]
     Dosage: 2 PUFFS BID
     Route: 055
     Dates: start: 20080101
  2. PULMICORT FLEXHALER [Suspect]
     Dosage: 4 PUFFS BID
     Route: 055
     Dates: start: 20090101
  3. SYNTHORID [Concomitant]
  4. MAXAIR [Concomitant]
  5. VITAMINS [Concomitant]
  6. SPIRIVA [Concomitant]

REACTIONS (1)
  - DYSPNOEA [None]
